FAERS Safety Report 10256426 (Version 2)
Quarter: 2014Q2

REPORT INFORMATION
  Report Type: Spontaneous
  Country: FR (occurrence: FR)
  Receive Date: 20140624
  Receipt Date: 20140624
  Transmission Date: 20141212
  Serious: Yes (Hospitalization, Other)
  Sender: FDA-Public Use
  Company Number: FR-GILEAD-2014-0102856

PATIENT
  Age: 51 Year
  Sex: Male
  Weight: 59 kg

DRUGS (9)
  1. SOFOSBUVIR [Suspect]
     Indication: HEPATITIS C
     Dosage: 1 DF, UNK
     Route: 048
     Dates: start: 20140221
  2. PEGASYS [Suspect]
     Indication: HEPATITIS C
     Dosage: 1 PERFUSION PER WEEK
     Route: 058
     Dates: start: 20140221, end: 20140420
  3. COPEGUS [Suspect]
     Indication: HEPATITIS C
     Dosage: 5 DF, QD
     Route: 048
  4. NEURONTIN [Concomitant]
     Indication: AXONAL NEUROPATHY
     Dosage: 1 DF, TID
     Route: 048
  5. ZALDIAR [Concomitant]
     Indication: PAIN
     Dosage: 2 DF, TID
     Route: 048
  6. AVLOCARDYL                         /00030002/ [Concomitant]
     Indication: GASTROOESOPHAGEAL VARICEAL HAEMORRHAGE PROPHYLAXIS
     Dosage: 1 DF, QD
     Route: 048
  7. FUROSEMIDE [Concomitant]
     Indication: PROPHYLAXIS
     Dosage: 1 DF, QD
     Route: 048
  8. LEXOMIL [Concomitant]
     Indication: ANXIETY
     Dosage: 0.5 MG, UNK
     Route: 048
  9. INIPOMP [Concomitant]
     Indication: GASTROOESOPHAGEAL REFLUX DISEASE
     Dosage: 1 DF, QD
     Route: 048

REACTIONS (3)
  - Suicidal ideation [Recovered/Resolved]
  - Major depression [Unknown]
  - Agitation [Recovered/Resolved]
